FAERS Safety Report 9356060 (Version 1)
Quarter: 2013Q2

REPORT INFORMATION
  Report Type: Spontaneous
  Country: IT (occurrence: IT)
  Receive Date: 20130619
  Receipt Date: 20130619
  Transmission Date: 20140414
  Serious: Yes (Hospitalization, Other)
  Sender: FDA-Public Use
  Company Number: IT-MERCK-1306ITA007269

PATIENT
  Age: 71 Year
  Sex: Female

DRUGS (3)
  1. PEGINTRON [Suspect]
     Indication: CHRONIC HEPATITIS C
     Dosage: 120 MICROGRAM, WEEKLY
     Route: 058
     Dates: start: 20130213, end: 20130601
  2. REBETOL [Suspect]
     Indication: CHRONIC HEPATITIS C
     Dosage: 1200MG DAILY
     Route: 048
     Dates: start: 20130213, end: 20130601
  3. VICTRELIS [Suspect]
     Indication: CHRONIC HEPATITIS C
     Dosage: 2400MG DAILY
     Route: 048
     Dates: start: 20130313, end: 20130601

REACTIONS (2)
  - Aphasia [Recovering/Resolving]
  - Atrial fibrillation [Recovering/Resolving]
